FAERS Safety Report 8269770-9 (Version None)
Quarter: 2012Q2

REPORT INFORMATION
  Report Type: 
  Country: None (occurrence: None)
  Receive Date: 20120405
  Receipt Date: 20120321
  Transmission Date: 20120825
  Serious: Yes (Life-Threatening, Hospitalization, Disabling, Other)
  Sender: FDA-Public Use
  Company Number: INT_00047_2012

PATIENT
  Age: 6 Year
  Sex: Female

DRUGS (1)
  1. CEFTRIAXONE [Suspect]
     Indication: ANTIBIOTIC PROPHYLAXIS
     Dosage: 50 MGH/KG EVERY 24 HOURS, INTRAVENOUS
     Route: 042

REACTIONS (4)
  - INCONTINENCE [None]
  - UNRESPONSIVE TO STIMULI [None]
  - HYPOXIC-ISCHAEMIC ENCEPHALOPATHY [None]
  - HAEMOLYSIS [None]
